FAERS Safety Report 9654811 (Version 1)
Quarter: 2013Q4

REPORT INFORMATION
  Report Type: Spontaneous
  Country: US (occurrence: US)
  Receive Date: 20131029
  Receipt Date: 20131029
  Transmission Date: 20140711
  Serious: No
  Sender: FDA-Public Use
  Company Number: US-PURDUE-USA-2012-0092127

PATIENT
  Age: 54 Year
  Sex: Female

DRUGS (2)
  1. OXYCODONE HYDROCHLORIDE (SIMILAR TO NDA 20-553) [Suspect]
     Indication: PAIN
     Dosage: UNKNOWN
     Route: 048
  2. METHADONE [Suspect]
     Indication: PAIN
     Dosage: UNKNOWN

REACTIONS (3)
  - Nausea [Unknown]
  - Feeling abnormal [Unknown]
  - Inadequate analgesia [Unknown]
